FAERS Safety Report 18563426 (Version 1)
Quarter: 2020Q4

REPORT INFORMATION
  Report Type: Other
  Country: GB (occurrence: GB)
  Receive Date: 20201201
  Receipt Date: 20201201
  Transmission Date: 20210114
  Serious: No
  Sender: FDA-Public Use
  Company Number: GB-LUPIN PHARMACEUTICALS INC.-2020-03550

PATIENT
  Age: 24 Year
  Sex: Male
  Weight: 62 kg

DRUGS (4)
  1. MACROGOL [Concomitant]
     Active Substance: POLYETHYLENE GLYCOLS
     Indication: PRODUCT USED FOR UNKNOWN INDICATION
     Dosage: UNK UNK, QD (TWO SACHETS TO BE TAKEN EACH DAY)
     Route: 065
     Dates: start: 20200225, end: 20200410
  2. MEBEVERINE [Concomitant]
     Active Substance: MEBEVERINE
     Indication: PRODUCT USED FOR UNKNOWN INDICATION
     Dosage: UNK UNK, TID (ONE TO BE TAKEN THREE TIMES A DAY TWENTY MINUTES BEFORE FOOD)
     Route: 065
     Dates: start: 20200407
  3. SERTRALINE [Suspect]
     Active Substance: SERTRALINE HYDROCHLORIDE
     Indication: ANXIETY DISORDER
     Dosage: UNK UNK, QD (ONE TO BE TAKEN EACH DAY)
     Route: 065
     Dates: start: 20200323, end: 20200507
  4. PROPRANOLOL [Concomitant]
     Active Substance: PROPRANOLOL HYDROCHLORIDE
     Indication: PRODUCT USED FOR UNKNOWN INDICATION
     Dosage: TAKE ONE OR TWO TABLETS UPTO THREE TIMES A DAY
     Route: 065
     Dates: start: 20200218

REACTIONS (1)
  - Bruxism [Unknown]
